FAERS Safety Report 25926003 (Version 1)
Quarter: 2025Q4

REPORT INFORMATION
  Report Type: Spontaneous
  Country: US (occurrence: None)
  Receive Date: 20251014
  Receipt Date: 20251014
  Transmission Date: 20260118
  Serious: Yes (Hospitalization)
  Sender: FDA-CTU
  Company Number: None

PATIENT
  Age: 46 Year
  Sex: Female

DRUGS (1)
  1. TEZSPIRE [Suspect]
     Active Substance: TEZEPELUMAB-EKKO

REACTIONS (10)
  - Pneumonia [None]
  - Fatigue [None]
  - Nausea [None]
  - Injection related reaction [None]
  - Chest pain [None]
  - Obstruction [None]
  - Pain in extremity [None]
  - Lung disorder [None]
  - Therapy interrupted [None]
  - Arterial thrombosis [None]
